FAERS Safety Report 5289042-4 (Version None)
Quarter: 2007Q2

REPORT INFORMATION
  Report Type: 
  Country: None (occurrence: None)
  Receive Date: 20070405
  Receipt Date: 20070328
  Transmission Date: 20071010
  Serious: Yes (Hospitalization)
  Sender: FDA-Public Use
  Company Number: AR-PFIZER INC-2007024950

PATIENT
  Sex: Female

DRUGS (2)
  1. SUTENT [Suspect]
  2. ANTIPSYCHOTICS [Concomitant]

REACTIONS (1)
  - PSYCHIATRIC SYMPTOM [None]
